FAERS Safety Report 7480632-7 (Version None)
Quarter: 2011Q2

REPORT INFORMATION
  Report Type: 
  Country: None (occurrence: None)
  Receive Date: 20110516
  Receipt Date: 20110505
  Transmission Date: 20111010
  Serious: Yes (Other)
  Sender: FDA-Public Use
  Company Number: SI-JNJFOC-20110310587

PATIENT

DRUGS (1)
  1. DOXORUBICIN HYDROCHLORIDE [Suspect]
     Indication: PRODUCT USED FOR UNKNOWN INDICATION
     Dosage: 2 MG/ML
     Route: 042
     Dates: start: 20110106, end: 20110106

REACTIONS (8)
  - HYPERSENSITIVITY [None]
  - FLUSHING [None]
  - PRODUCT QUALITY ISSUE [None]
  - PYREXIA [None]
  - BACK PAIN [None]
  - INFUSION RELATED REACTION [None]
  - HYPERTENSION [None]
  - RESPIRATORY RATE INCREASED [None]
